FAERS Safety Report 13029266 (Version 2)
Quarter: 2017Q1

REPORT INFORMATION
  Report Type: Spontaneous
  Country: TR (occurrence: TR)
  Receive Date: 20161215
  Receipt Date: 20170109
  Transmission Date: 20170428
  Serious: Yes (Other)
  Sender: FDA-Public Use
  Company Number: TR-ORION CORPORATION ORION PHARMA-16_00002067

PATIENT
  Age: 50 Year
  Sex: Female

DRUGS (2)
  1. METHOTREXATE. [Suspect]
     Active Substance: METHOTREXATE
     Indication: PSORIASIS
     Route: 065
  2. METHOTREXATE. [Interacting]
     Active Substance: METHOTREXATE
     Route: 065

REACTIONS (8)
  - Genital ulceration [Recovered/Resolved]
  - Toxicity to various agents [Unknown]
  - Mouth ulceration [Recovered/Resolved]
  - Folate deficiency [Unknown]
  - Herbal interaction [Unknown]
  - Leukopenia [Recovered/Resolved]
  - Haematuria [Unknown]
  - Thrombocytopenia [Recovered/Resolved]
